FAERS Safety Report 17469162 (Version 4)
Quarter: 2020Q3

REPORT INFORMATION
  Report Type: Report from Study
  Country: US (occurrence: US)
  Receive Date: 20200227
  Receipt Date: 20200805
  Transmission Date: 20201102
  Serious: No
  Sender: FDA-Public Use
  Company Number: US-BRISTOL-MYERS SQUIBB COMPANY-BMS-2020-015714

PATIENT
  Sex: Male
  Weight: 172.3 kg

DRUGS (13)
  1. MINERAL OIL. [Concomitant]
     Active Substance: MINERAL OIL
     Indication: PRODUCT USED FOR UNKNOWN INDICATION
     Dosage: 1 CAPSULE, QD
     Route: 048
  2. ASPIR 81 [Concomitant]
     Active Substance: ASPIRIN
     Indication: PRODUCT USED FOR UNKNOWN INDICATION
     Dosage: 2 TAB, QD (DELAYED RELEASE)
     Route: 048
  3. SUPER CALCIUM [Concomitant]
     Indication: PRODUCT USED FOR UNKNOWN INDICATION
     Dosage: 1500 MILLIGRAM, QD (CIRCULATION SUPPORT)
     Route: 065
  4. PHOSPHATIDYL CHOLINE [Concomitant]
     Active Substance: LECITHIN
     Indication: PRODUCT USED FOR UNKNOWN INDICATION
     Dosage: 100 PERCENT POWDER (TAKE CAP), QD
     Route: 048
  5. LISINOPRIL. [Concomitant]
     Active Substance: LISINOPRIL
     Indication: PRODUCT USED FOR UNKNOWN INDICATION
     Dosage: 2.5 MILLIGRAM, QHS
     Route: 065
  6. APIXABAN [Suspect]
     Active Substance: APIXABAN
     Indication: CEREBROVASCULAR ACCIDENT PROPHYLAXIS
     Dosage: 5 MILLIGRAM, BID
     Route: 048
     Dates: start: 20200219
  7. SUPER B 50 COMPLEX [Concomitant]
     Indication: PRODUCT USED FOR UNKNOWN INDICATION
     Dosage: DAILY
     Route: 065
  8. TRESIBA [Concomitant]
     Active Substance: INSULIN DEGLUDEC
     Indication: PRODUCT USED FOR UNKNOWN INDICATION
     Dosage: U?100 INSULIN 100 UNIT/ML (3 ML) SUBCUTANEOUS PEN (20 UNITE DAILY)
     Route: 050
  9. FLAXSEED OIL [LINUM USITATISSIMUM SEED OIL] [Concomitant]
     Active Substance: HERBALS\LINSEED OIL
     Indication: PRODUCT USED FOR UNKNOWN INDICATION
     Dosage: 1300 MG?OMEGA 3,6,9 845 MG?117 MG?117 MG CAPSULE (ONE CAP ONCE DAILY)
     Route: 048
  10. VITAMIN C [Concomitant]
     Active Substance: ASCORBIC ACID
     Indication: PRODUCT USED FOR UNKNOWN INDICATION
     Dosage: EXTENDED RELEASE (ONE CAP), QD
     Route: 048
  11. PHYTOSTEROLS NOS [Concomitant]
     Indication: PRODUCT USED FOR UNKNOWN INDICATION
     Dosage: 1 CAP, QD
     Route: 048
  12. VITAMIN E [Concomitant]
     Active Substance: .ALPHA.-TOCOPHEROL
     Indication: PRODUCT USED FOR UNKNOWN INDICATION
     Dosage: 1,000 UNIT CAPSULE (ONE TAB CAP) QD
     Route: 065
  13. BETA CAROTENE. [Concomitant]
     Active Substance: BETA CAROTENE
     Indication: PRODUCT USED FOR UNKNOWN INDICATION
     Dosage: 25000 UNIT, DAILY
     Route: 065

REACTIONS (1)
  - Weight decreased [Unknown]
